FAERS Safety Report 20583389 (Version 1)
Quarter: 2022Q1

REPORT INFORMATION
  Report Type: Spontaneous
  Country: US (occurrence: US)
  Receive Date: 20220311
  Receipt Date: 20220311
  Transmission Date: 20220424
  Serious: No
  Sender: FDA-Public Use
  Company Number: US-FOUNDATIONCONSUMERHC-2022-US-001518

PATIENT
  Age: 38 Year
  Sex: Female
  Weight: 73.94 kg

DRUGS (1)
  1. AFTERA [Suspect]
     Active Substance: LEVONORGESTREL
     Indication: Post coital contraception
     Dosage: 1.5 MG X 2 DOSES (THE RECENT DOSE WAS DROPPED AND THEREFORE SHE ONLY TOOK HALF OF THE TABLET)
     Route: 048
     Dates: start: 2020, end: 20220117

REACTIONS (4)
  - Headache [Recovered/Resolved]
  - Dysmenorrhoea [Recovered/Resolved]
  - Intentional product misuse [Recovered/Resolved]
  - Incorrect dosage administered [Recovered/Resolved]

NARRATIVE: CASE EVENT DATE: 20200101
